FAERS Safety Report 17425767 (Version 1)
Quarter: 2020Q1

REPORT INFORMATION
  Report Type: Spontaneous
  Country: US (occurrence: US)
  Receive Date: 20200218
  Receipt Date: 20200218
  Transmission Date: 20200409
  Serious: No
  Sender: FDA-Public Use
  Company Number: US-BRISTOL-MYERS SQUIBB COMPANY-BMS-2020-012631

PATIENT
  Sex: Female
  Weight: 61.69 kg

DRUGS (1)
  1. ELIQUIS [Suspect]
     Active Substance: APIXABAN
     Indication: DEEP VEIN THROMBOSIS
     Dosage: 5 MILLIGRAM, QD
     Route: 048

REACTIONS (5)
  - Intentional product use issue [Unknown]
  - Diarrhoea [Unknown]
  - Bursitis [Unknown]
  - Rotator cuff syndrome [Unknown]
  - Arthralgia [Unknown]
